FAERS Safety Report 12885740 (Version 1)
Quarter: 2016Q4

REPORT INFORMATION
  Report Type: Spontaneous
  Country: US (occurrence: US)
  Receive Date: 20161025
  Receipt Date: 20161025
  Transmission Date: 20170207
  Serious: Yes (Other)
  Sender: FDA-Public Use
  Company Number: None

PATIENT
  Age: 87 Year
  Sex: Male
  Weight: 73.2 kg

DRUGS (10)
  1. DUTASTERIDE. [Suspect]
     Active Substance: DUTASTERIDE
     Indication: OSTEOARTHRITIS
     Route: 048
     Dates: start: 20150527
  2. LOSARTAN. [Concomitant]
     Active Substance: LOSARTAN
  3. IBUPROFEN. [Concomitant]
     Active Substance: IBUPROFEN
  4. FUROSEMIDE. [Concomitant]
     Active Substance: FUROSEMIDE
  5. DUTASTERIDE. [Concomitant]
     Active Substance: DUTASTERIDE
  6. ASCORBIC ACID. [Concomitant]
     Active Substance: ASCORBIC ACID
  7. COMPAZINE [Concomitant]
     Active Substance: PROCHLORPERAZINE MALEATE
  8. PREDNISONE. [Concomitant]
     Active Substance: PREDNISONE
  9. VITAMIN D [Concomitant]
     Active Substance: CHOLECALCIFEROL
  10. ENZALUTAMIDE [Suspect]
     Active Substance: ENZALUTAMIDE
     Indication: PROSTATE CANCER
     Route: 048
     Dates: start: 20150527

REACTIONS (4)
  - Hip arthroplasty [None]
  - Bundle branch block left [None]
  - Syncope [None]
  - Post procedural myocardial infarction [None]

NARRATIVE: CASE EVENT DATE: 20160331
